FAERS Safety Report 19498491 (Version 1)
Quarter: 2021Q3

REPORT INFORMATION
  Report Type: Report from Study
  Country: FR (occurrence: FR)
  Receive Date: 20210706
  Receipt Date: 20210706
  Transmission Date: 20211014
  Serious: Yes (Other)
  Sender: FDA-Public Use
  Company Number: FR-ROCHE-2860905

PATIENT
  Age: 71 Year
  Sex: Male

DRUGS (11)
  1. PEMETREXED. [Concomitant]
     Active Substance: PEMETREXED
     Dosage: EVERY 1 CYCLE(S) DAY 1 OF CYCLE OF 21 DAYS
     Route: 042
     Dates: start: 20200909, end: 20201005
  2. PEMETREXED. [Concomitant]
     Active Substance: PEMETREXED
     Dosage: EVERY 1 CYCLE(S) DAY 1 OF CYCLE OF 21 DAYS
     Route: 042
     Dates: start: 20201030, end: 20201209
  3. CARBOPLATIN. [Concomitant]
     Active Substance: CARBOPLATIN
     Dosage: EVERY 1 CYCLE(S) DAY 1 OF CYCLE OF 21 DAYS
     Route: 042
     Dates: start: 20200810, end: 20200810
  4. CARBOPLATIN. [Concomitant]
     Active Substance: CARBOPLATIN
     Dosage: EVERY 1 CYCLE(S) DAY 1 OF CYCLE OF 21 DAYS
     Route: 042
     Dates: start: 20200909, end: 20200909
  5. ATEZOLIZUMAB. [Suspect]
     Active Substance: ATEZOLIZUMAB
     Indication: NON-SMALL CELL LUNG CANCER
     Dosage: EVERY 1 CYCLE(S) DAY 1 OF CYCLE OF 21 DAYS
     Route: 042
     Dates: start: 20200720, end: 20201209
  6. PEMETREXED. [Concomitant]
     Active Substance: PEMETREXED
     Dosage: EVERY 1 CYCLE(S) DAY 1 OF CYCLE OF 21 DAYS
     Route: 042
     Dates: start: 20200810, end: 20200810
  7. CARBOPLATIN. [Concomitant]
     Active Substance: CARBOPLATIN
     Indication: NON-SMALL CELL LUNG CANCER
     Dosage: EVERY 1 CYCLE(S) DAY 1 OF CYCLE OF 21 DAYS
     Route: 042
     Dates: start: 20200720, end: 20200720
  8. BEVACIZUMAB. [Suspect]
     Active Substance: BEVACIZUMAB
     Indication: NON-SMALL CELL LUNG CANCER
     Dosage: EVERY 1 CYCLE(S) DAY 1 OF 21 DAYS
     Route: 042
     Dates: start: 20200810, end: 20200909
  9. CARBOPLATIN. [Concomitant]
     Active Substance: CARBOPLATIN
     Dosage: EVERY 1 CYCLE(S) DAY 1 OF CYCLE OF 21 DAYS
     Route: 042
     Dates: start: 20201005, end: 20201005
  10. BEVACIZUMAB. [Suspect]
     Active Substance: BEVACIZUMAB
     Route: 042
     Dates: start: 20201005, end: 20201209
  11. PEMETREXED. [Concomitant]
     Active Substance: PEMETREXED
     Indication: NON-SMALL CELL LUNG CANCER
     Dosage: EVERY 1 CYCLE(S) DAY 1 OF CYCLE OF 21 DAYS
     Route: 042
     Dates: start: 20200720, end: 20200720

REACTIONS (1)
  - Postoperative wound complication [Recovered/Resolved]

NARRATIVE: CASE EVENT DATE: 20201216
